FAERS Safety Report 7003624-0 (Version None)
Quarter: 2010Q3

REPORT INFORMATION
  Report Type: 
  Country: None (occurrence: None)
  Receive Date: 20100920
  Receipt Date: 20090626
  Transmission Date: 20110219
  Serious: No
  Sender: FDA-Public Use
  Company Number: US-WYE-H06541508

PATIENT
  Sex: Female
  Weight: 68.1 kg

DRUGS (2)
  1. PROTONIX [Suspect]
     Indication: GASTROOESOPHAGEAL REFLUX DISEASE
     Route: 048
     Dates: start: 20050101
  2. PREMARIN [Concomitant]

REACTIONS (2)
  - DRUG EFFECT DECREASED [None]
  - PRODUCT QUALITY ISSUE [None]
